FAERS Safety Report 21493290 (Version 1)
Quarter: 2022Q4

REPORT INFORMATION
  Report Type: Spontaneous
  Country: US (occurrence: None)
  Receive Date: 20221021
  Receipt Date: 20221021
  Transmission Date: 20230113
  Serious: Yes (Other)
  Sender: FDA-Public Use
  Company Number: None

PATIENT
  Age: 29 Year
  Sex: Female

DRUGS (1)
  1. DEXTROAMPHETAMINE [Suspect]
     Active Substance: DEXTROAMPHETAMINE
     Indication: Attention deficit hyperactivity disorder
     Dosage: OTHER QUANTITY : 1 TABLET(S);?FREQUENCY : 3 TIMES A DAY;?
     Route: 048
     Dates: start: 20221019, end: 20221021

REACTIONS (7)
  - Product substitution issue [None]
  - Drug ineffective [None]
  - Fatigue [None]
  - Headache [None]
  - Crying [None]
  - Insomnia [None]
  - Anger [None]

NARRATIVE: CASE EVENT DATE: 20221020
